FAERS Safety Report 7869152-5 (Version None)
Quarter: 2011Q4

REPORT INFORMATION
  Report Type: 
  Country: None (occurrence: None)
  Receive Date: 20111024
  Receipt Date: 20111010
  Transmission Date: 20120403
  Serious: Yes (Other)
  Sender: FDA-Public Use
  Company Number: 2011SP047732

PATIENT
  Age: 29 Year
  Sex: Female

DRUGS (3)
  1. RIBAVIRIN [Suspect]
     Indication: PRODUCT USED FOR UNKNOWN INDICATION
     Dates: start: 20110601
  2. PEG-INTRON [Suspect]
     Indication: PRODUCT USED FOR UNKNOWN INDICATION
     Dates: start: 20110601
  3. VICTRELIS [Suspect]
     Indication: HEPATITIS C
     Dosage: 800 MG;TID;PO
     Route: 048
     Dates: start: 20110601

REACTIONS (7)
  - PLATELET COUNT DECREASED [None]
  - RASH [None]
  - CHILLS [None]
  - REFUSAL OF TREATMENT BY PATIENT [None]
  - NEUTROPENIA [None]
  - DECREASED APPETITE [None]
  - PAIN [None]
